FAERS Safety Report 20219418 (Version 5)
Quarter: 2022Q1

REPORT INFORMATION
  Report Type: Report from Study
  Country: DE (occurrence: DE)
  Receive Date: 20211222
  Receipt Date: 20220221
  Transmission Date: 20220423
  Serious: Yes (Death, Hospitalization, Other)
  Sender: FDA-Public Use
  Company Number: DE-BRISTOL-MYERS SQUIBB COMPANY-BMS-2021-139093

PATIENT
  Age: 69 Year
  Sex: Male
  Weight: 77 kg

DRUGS (9)
  1. NIVOLUMAB [Suspect]
     Active Substance: NIVOLUMAB
     Indication: Neoplasm malignant
     Dosage: 240 MILLIGRAM, Q2WK, FLAT DOSE
     Route: 041
     Dates: start: 20200608, end: 20211209
  2. IPILIMUMAB [Suspect]
     Active Substance: IPILIMUMAB
     Indication: Neoplasm malignant
     Dosage: 82 MILLIGRAM, Q6WK
     Route: 041
     Dates: start: 20200608, end: 20201130
  3. PANTOPRAZOLE [Concomitant]
     Active Substance: PANTOPRAZOLE
     Indication: Prophylaxis
     Dosage: 20 MILLIGRAM
     Route: 048
     Dates: end: 20211215
  4. HYDROMORPHONE [Concomitant]
     Active Substance: HYDROMORPHONE
     Indication: Pain
     Dosage: 16 MILLIGRAM
     Route: 048
     Dates: start: 20201012, end: 20211215
  5. NOVALGIN (METAMIZOLE SODIUM) [Concomitant]
     Active Substance: METAMIZOLE SODIUM
     Indication: Pain
     Dosage: 500 MILLIGRAM
     Route: 048
     Dates: end: 20211215
  6. PREGABALIN [Concomitant]
     Active Substance: PREGABALIN
     Indication: Polyneuropathy
     Dosage: 600 MILLIGRAM
     Route: 048
     Dates: start: 20210426, end: 20211215
  7. FILGRASTIM [Concomitant]
     Active Substance: FILGRASTIM
     Indication: Neutropenia
     Dosage: 48 INTERNATIONAL UNIT
     Route: 058
     Dates: start: 20211210, end: 20211212
  8. MOVICOL [Concomitant]
     Active Substance: POLYETHYLENE GLYCOL 3350\POTASSIUM CHLORIDE\SODIUM BICARBONATE\SODIUM CHLORIDE
     Indication: Prophylaxis
     Dosage: 1 PACK AS NEEDED
     Route: 048
  9. METRONIDAZOLE [Concomitant]
     Active Substance: METRONIDAZOLE
     Indication: Product used for unknown indication
     Route: 065

REACTIONS (3)
  - Neutropenic sepsis [Fatal]
  - Oesophageal fistula [Fatal]
  - Malignant neoplasm of unknown primary site [Fatal]

NARRATIVE: CASE EVENT DATE: 20211215
